FAERS Safety Report 7884657 (Version 3)
Quarter: 2014Q1

REPORT INFORMATION
  Report Type: Spontaneous
  Country: US (occurrence: US)
  Receive Date: 20110405
  Receipt Date: 20140210
  Transmission Date: 20141002
  Serious: Yes (Other)
  Sender: FDA-Public Use
  Company Number: US-BAYER-2010-002178

PATIENT
  Age: 25 Year
  Sex: Female
  Weight: 52 kg

DRUGS (5)
  1. YAZ [Suspect]
     Indication: PRODUCT USED FOR UNKNOWN INDICATION
     Dosage: UNK
     Dates: start: 2004, end: 2008
  2. ADVIL [Concomitant]
     Indication: ABDOMINAL PAIN
     Dosage: UNK UNK, OW
     Dates: start: 200706, end: 200707
  3. TOPAMAX [Concomitant]
  4. LYRICA [Concomitant]
  5. MIDRIN [Concomitant]

REACTIONS (9)
  - Gallbladder injury [None]
  - Cholecystitis chronic [None]
  - Injury [None]
  - Pain [None]
  - General physical health deterioration [None]
  - Anxiety [None]
  - Decreased interest [None]
  - Emotional distress [None]
  - Biliary dyskinesia [None]
